FAERS Safety Report 11757795 (Version 1)
Quarter: 2015Q4

REPORT INFORMATION
  Report Type: Spontaneous
  Country: US (occurrence: US)
  Receive Date: 20151120
  Receipt Date: 20151120
  Transmission Date: 20160304
  Serious: Yes (Life-Threatening, Hospitalization)
  Sender: FDA-Public Use
  Company Number: US-ENDO PHARMACEUTICALS INC.-2015-004268

PATIENT
  Age: 88 Year
  Sex: Male
  Weight: 113 kg

DRUGS (3)
  1. PREDNISONE TABLETS 5MG [Suspect]
     Active Substance: PREDNISONE
     Indication: PROSTATE CANCER METASTATIC
     Route: 048
     Dates: start: 20150422, end: 20150630
  2. ENZALUTAMIDE [Suspect]
     Active Substance: ENZALUTAMIDE
     Indication: PROSTATE CANCER METASTATIC
     Route: 048
     Dates: start: 20150422, end: 20150630
  3. ABIRATERONE ACETATE [Suspect]
     Active Substance: ABIRATERONE ACETATE
     Indication: PROSTATE CANCER METASTATIC
     Route: 048
     Dates: start: 20150422, end: 20150630

REACTIONS (4)
  - Dehydration [Not Recovered/Not Resolved]
  - Blood creatinine increased [Not Recovered/Not Resolved]
  - Hypoglycaemia [Not Recovered/Not Resolved]
  - Chronic kidney disease [Not Recovered/Not Resolved]

NARRATIVE: CASE EVENT DATE: 20150702
